FAERS Safety Report 7729216-3 (Version None)
Quarter: 2011Q3

REPORT INFORMATION
  Report Type: 
  Country: None (occurrence: None)
  Receive Date: 20110906
  Receipt Date: 20110822
  Transmission Date: 20111222
  Serious: No
  Sender: FDA-Public Use
  Company Number: US-PFIZER INC-2011205369

PATIENT
  Sex: Male
  Weight: 99.773 kg

DRUGS (21)
  1. FLAGYL [Suspect]
  2. GABAPENTIN [Concomitant]
     Indication: NEURALGIA
     Dosage: UNK
  3. TESTOSTERONE [Concomitant]
     Indication: BLOOD TESTOSTERONE DECREASED
     Dosage: UNK
  4. EZETIMIBE [Concomitant]
     Indication: BLOOD CHOLESTEROL INCREASED
     Dosage: UNK
  5. LORAZEPAM [Concomitant]
     Indication: PANIC ATTACK
     Dosage: UNK
  6. OXYCODONE [Concomitant]
     Indication: PAIN
     Dosage: UNK
  7. POTASSIUM [Concomitant]
     Indication: MINERAL SUPPLEMENTATION
     Dosage: UNK
  8. MULTIVITAMIN [Concomitant]
     Indication: EYE DISORDER
     Dosage: UNK
     Dates: start: 20110401
  9. ETANERCEPT [Concomitant]
     Indication: PSORIASIS
     Dosage: UNK
  10. LOSARTAN POTASSIUM [Concomitant]
     Indication: HYPERTENSION
     Dosage: UNK
  11. CETIRIZINE [Concomitant]
     Indication: HYPERSENSITIVITY
     Dosage: UNK
  12. PAROXETINE HYDROCHLORIDE [Concomitant]
     Indication: DEPRESSION
     Dosage: UNK
  13. TYLOX [Concomitant]
     Indication: PAIN
     Dosage: UNK
  14. HYDROCHLOROTHIAZIDE [Concomitant]
     Indication: FLUID RETENTION
     Dosage: UNK
  15. HUMIRA [Concomitant]
     Indication: PSORIATIC ARTHROPATHY
     Dosage: 40 MG/0.8 ML, 4 SHOTS TOTAL, TID
     Dates: start: 20110401, end: 20110601
  16. LANSOPRAZOLE [Concomitant]
     Indication: GASTRIC DISORDER
     Dosage: UNK
  17. CYANOCOBALAMIN [Concomitant]
     Indication: PERNICIOUS ANAEMIA
     Dosage: UNK
  18. FISH OIL [Concomitant]
     Indication: CARDIAC DISORDER
     Dosage: UNK
  19. HUMIRA [Concomitant]
     Indication: PSORIASIS
  20. CLORAZEPATE DIPOTASSIUM [Concomitant]
     Indication: ANXIETY
     Dosage: UNK
  21. WARFARIN SODIUM [Concomitant]
     Indication: PULMONARY EMBOLISM
     Dosage: UNK

REACTIONS (3)
  - DRUG HYPERSENSITIVITY [None]
  - NAUSEA [None]
  - VOMITING [None]
